FAERS Safety Report 16341958 (Version 2)
Quarter: 2019Q3

REPORT INFORMATION
  Report Type: Spontaneous
  Country: JP (occurrence: JP)
  Receive Date: 20190522
  Receipt Date: 20190710
  Transmission Date: 20191004
  Serious: Yes (Death, Other)
  Sender: FDA-Public Use
  Company Number: JP-GILEAD-2019-0396967

PATIENT
  Age: 70 Year
  Sex: Male
  Weight: 63 kg

DRUGS (8)
  1. PLETAAL [Concomitant]
     Active Substance: CILOSTAZOL
     Indication: ANEURYSM
     Dosage: 2 DOSAGE FORM, BID(MORNING, EVENING)
     Route: 048
     Dates: start: 20181119, end: 20190403
  2. AMLODIPINE [Concomitant]
     Active Substance: AMLODIPINE BESYLATE
     Indication: HYPERTENSION
     Dosage: 1 DOSAGE FORM
     Route: 048
     Dates: start: 20181203, end: 20190403
  3. VEMLIDY [Suspect]
     Active Substance: TENOFOVIR ALAFENAMIDE FUMARATE
     Indication: ACUTE HEPATITIS B
     Dosage: 1 DF/DAY
     Route: 048
     Dates: start: 20190311, end: 20190423
  4. METHYCOBAL [Concomitant]
     Active Substance: METHYLCOBALAMIN
     Indication: NEUROPATHY PERIPHERAL
     Dosage: 3 DOSAGE FORM, TID
     Route: 048
     Dates: start: 20190204, end: 20190403
  5. TAKECAB [Concomitant]
     Active Substance: VONOPRAZAN FUMURATE
     Indication: HAEMORRHAGE PROPHYLAXIS
     Dosage: 1 DOSAGE FORM
     Route: 048
     Dates: start: 20181119, end: 20190403
  6. FEBURIC [Concomitant]
     Active Substance: FEBUXOSTAT
     Indication: HYPERURICAEMIA
     Dosage: 1 DOSAGE FORM, MORNING
     Route: 048
     Dates: start: 20181203, end: 20190403
  7. CLOPIDOGREL [Concomitant]
     Active Substance: CLOPIDOGREL BISULFATE
     Indication: ANEURYSM
     Dosage: 1 DOSAGE FORM
     Route: 048
     Dates: start: 20181119, end: 20190403
  8. ENTECAVIR. [Concomitant]
     Active Substance: ENTECAVIR
     Indication: ACUTE HEPATITIS B
     Dosage: UNK
     Route: 065

REACTIONS (1)
  - Hepatic failure [Fatal]

NARRATIVE: CASE EVENT DATE: 20190318
